FAERS Safety Report 5061907-8 (Version None)
Quarter: 2006Q3

REPORT INFORMATION
  Report Type: 
  Country: None (occurrence: None)
  Receive Date: 20060703
  Receipt Date: 20060316
  Transmission Date: 20061208
  Serious: No
  Sender: FDA-Public Use
  Company Number: 2006PV010414

PATIENT
  Sex: Female

DRUGS (3)
  1. SYMLIN [Suspect]
     Dosage: SC
     Route: 058
     Dates: start: 20060313
  2. NOVOLOG [Concomitant]
  3. LANTUS [Concomitant]

REACTIONS (2)
  - MEDICATION ERROR [None]
  - NO ADVERSE EFFECT [None]
